FAERS Safety Report 21903001 (Version 1)
Quarter: 2023Q1

REPORT INFORMATION
  Report Type: Spontaneous
  Country: US (occurrence: None)
  Receive Date: 20230123
  Receipt Date: 20230123
  Transmission Date: 20230418
  Serious: Yes (Hospitalization)
  Sender: FDA-Public Use
  Company Number: None

PATIENT
  Sex: Male

DRUGS (22)
  1. ENVARSUS XR [Suspect]
     Active Substance: TACROLIMUS
     Indication: Renal transplant
     Dosage: 4 MG ORAL??TAKE 2 TABLETS BY MOUTH ONCE DAILY. TAKE ALONG WITH ONE 1 MG TABLET FOR A TOTAL DAILY DOS
     Route: 048
     Dates: start: 20191122
  2. ENVARSUS XR [Suspect]
     Active Substance: TACROLIMUS
     Dosage: FREQUENCY : AS DIRECTED;?
     Route: 048
  3. ASPIRIN CHW [Concomitant]
  4. BRIMONIDINE [Concomitant]
     Active Substance: BRIMONIDINE TARTRATE
  5. CYMBALTA [Concomitant]
     Active Substance: DULOXETINE HYDROCHLORIDE
  6. GABAPENTIN [Concomitant]
     Active Substance: GABAPENTIN
  7. HUMALOG [Concomitant]
  8. LANTUS [Concomitant]
     Active Substance: INSULIN GLARGINE
  9. LEVOTHYROXINE [Concomitant]
     Active Substance: LEVOTHYROXINE
  10. METOPROLOL [Concomitant]
     Active Substance: METOPROLOL
  11. MYCOPHENOLATE MOFETIL [Concomitant]
     Active Substance: MYCOPHENOLATE MOFETIL
  12. NIFEDIPINE [Concomitant]
     Active Substance: NIFEDIPINE
  13. OSCAL/D3 [Concomitant]
  14. PRADAXA [Concomitant]
     Active Substance: DABIGATRAN ETEXILATE MESYLATE
  15. PREDNISONE [Concomitant]
     Active Substance: PREDNISONE
  16. RANITIDINE [Concomitant]
     Active Substance: RANITIDINE
  17. SIMVASTATIN [Concomitant]
     Active Substance: SIMVASTATIN
  18. SYMLNPEN [Concomitant]
  19. TACROLIMS [Concomitant]
  20. TIMOLOL [Concomitant]
     Active Substance: TIMOLOL
  21. XALATAN [Concomitant]
  22. ZEMPLAR [Concomitant]
     Active Substance: PARICALCITOL

REACTIONS (1)
  - Hospitalisation [None]
